FAERS Safety Report 6194503-X (Version None)
Quarter: 2009Q2

REPORT INFORMATION
  Report Type: 
  Country: None (occurrence: None)
  Receive Date: 20090514
  Receipt Date: 20090312
  Transmission Date: 20091009
  Serious: Yes (Other)
  Sender: FDA-Public Use
  Company Number: 220001L09ITA

PATIENT
  Age: 10 Year
  Sex: Female

DRUGS (2)
  1. SOMATROPIN (SOMATROPTN) [Suspect]
     Indication: GROWTH HORMONE DEFICIENCY
     Dosage: 3 MG, 1 IN 1 WEEKS; 5 MG, 1 IN 1 WEEKS
     Dates: start: 20040201, end: 20040601
  2. SOMATROPIN (SOMATROPTN) [Suspect]
     Indication: GROWTH HORMONE DEFICIENCY
     Dosage: 3 MG, 1 IN 1 WEEKS; 5 MG, 1 IN 1 WEEKS
     Dates: start: 20050301

REACTIONS (5)
  - BRAIN OEDEMA [None]
  - CONDITION AGGRAVATED [None]
  - HEADACHE [None]
  - INFLAMMATION [None]
  - VISUAL IMPAIRMENT [None]
